FAERS Safety Report 25981495 (Version 1)
Quarter: 2025Q4

REPORT INFORMATION
  Report Type: Spontaneous
  Country: EU (occurrence: EU)
  Receive Date: 20251030
  Receipt Date: 20251030
  Transmission Date: 20260118
  Serious: Yes (Hospitalization)
  Sender: JOHNSON AND JOHNSON
  Company Number: None

PATIENT
  Age: 66 Year
  Sex: Female

DRUGS (5)
  1. SPRAVATO [Suspect]
     Active Substance: ESKETAMINE
     Indication: Depression
     Route: 045
     Dates: start: 20241210, end: 20250930
  2. LEVOTHYROXINE SODIUM [Concomitant]
     Active Substance: LEVOTHYROXINE SODIUM
     Dosage: 100 TABLETS
     Route: 048
     Dates: start: 20221124
  3. LORAZEPAM [Concomitant]
     Active Substance: LORAZEPAM
     Dosage: 1 MG TABLES EFG, 50 TABLETS
     Route: 048
     Dates: start: 20210709
  4. LORAZEPAM [Concomitant]
     Active Substance: LORAZEPAM
     Dosage: 1 MG EFG TABLES, 30 TABLETS
     Route: 048
     Dates: start: 20160808
  5. VENLABRAIN RETARD [Concomitant]
     Dosage: 300 MG EXTENDED-RELEASE TABLETS, 30 TABLETS
     Route: 048
     Dates: start: 20221214

REACTIONS (1)
  - Suicide attempt [Recovered/Resolved]

NARRATIVE: CASE EVENT DATE: 20251001
